FAERS Safety Report 14670847 (Version 3)
Quarter: 2018Q2

REPORT INFORMATION
  Report Type: Spontaneous
  Country: US (occurrence: US)
  Receive Date: 20180322
  Receipt Date: 20180423
  Transmission Date: 20180711
  Serious: Yes (Hospitalization, Other)
  Sender: FDA-Public Use
  Company Number: US-SUNOVION-2018SUN001098

PATIENT
  Age: 80 Year
  Sex: Female
  Weight: 77.98 kg

DRUGS (2)
  1. LATUDA [Suspect]
     Active Substance: LURASIDONE HYDROCHLORIDE
     Indication: SCHIZOPHRENIA
     Dosage: 80 MG, QD
     Route: 048
     Dates: start: 20161202
  2. ZYPREXA [Concomitant]
     Active Substance: OLANZAPINE
     Dosage: UNK

REACTIONS (47)
  - Confusional state [Unknown]
  - Diarrhoea [Unknown]
  - Bronchitis [Unknown]
  - Abdominal tenderness [Unknown]
  - Feeling abnormal [Unknown]
  - Vision blurred [Unknown]
  - Insomnia [Unknown]
  - Nausea [Unknown]
  - Dyspepsia [Unknown]
  - Speech disorder [Unknown]
  - Chest pain [Unknown]
  - Fatigue [Unknown]
  - Dizziness [Unknown]
  - Blindness [Unknown]
  - Yellow skin [Unknown]
  - Cold sweat [Unknown]
  - Urinary incontinence [Unknown]
  - Headache [Unknown]
  - Neck pain [Unknown]
  - Abdominal discomfort [Unknown]
  - Hyperhidrosis [Unknown]
  - Dysarthria [Unknown]
  - Gastrointestinal disorder [Unknown]
  - Hyperventilation [Unknown]
  - Pain [Unknown]
  - Cough [Unknown]
  - Gait disturbance [Unknown]
  - Hypersomnia [Unknown]
  - Peripheral coldness [Unknown]
  - Eructation [Unknown]
  - Balance disorder [Unknown]
  - Chills [Unknown]
  - Reduced facial expression [Unknown]
  - Musculoskeletal discomfort [Unknown]
  - Myalgia [Unknown]
  - Musculoskeletal stiffness [Unknown]
  - Back pain [Unknown]
  - Urinary tract infection [Unknown]
  - Oral discomfort [Unknown]
  - Dysphagia [Unknown]
  - Pruritus [Unknown]
  - Pallor [Unknown]
  - Muscle spasms [Unknown]
  - Flatulence [Unknown]
  - Rash pruritic [Unknown]
  - Dyspnoea [Unknown]
  - Decreased appetite [Unknown]

NARRATIVE: CASE EVENT DATE: 201612
